FAERS Safety Report 4412530-7 (Version None)
Quarter: 2004Q2

REPORT INFORMATION
  Report Type: 
  Country: None (occurrence: None)
  Receive Date: 20040630
  Receipt Date: 20040331
  Transmission Date: 20050107
  Serious: No
  Sender: FDA-Public Use
  Company Number: 04P-163-0256018-00

PATIENT
  Age: 41 Year
  Sex: Female
  Weight: 48.9885 kg

DRUGS (7)
  1. HUMIRA [Suspect]
     Indication: RHEUMATOID ARTHRITIS
     Dosage: 40 MG, 1 IN 2 WK, SUBCUTANEOUS
     Route: 058
     Dates: start: 20030701
  2. PREDNISONE [Suspect]
     Indication: RHEUMATOID ARTHRITIS
     Dosage: PER ORAL
     Route: 048
  3. ROFECOXIB [Concomitant]
  4. METHOTREXATE SODIUM [Concomitant]
  5. VICODIN [Concomitant]
  6. ALPRAZOLAM [Concomitant]
  7. NORTRIPTYLINE HCL [Concomitant]

REACTIONS (1)
  - SKIN LACERATION [None]
